FAERS Safety Report 7061373-7 (Version None)
Quarter: 2010Q4

REPORT INFORMATION
  Report Type: 
  Country: None (occurrence: None)
  Receive Date: 20101026
  Receipt Date: 20101014
  Transmission Date: 20110411
  Serious: Yes (Disabling, Other)
  Sender: FDA-Public Use
  Company Number: PHHY2010CH68569

PATIENT
  Sex: Female

DRUGS (7)
  1. ZOMETA [Suspect]
     Indication: BREAST CANCER FEMALE
     Dosage: 0.4 MG, QMO
     Route: 042
     Dates: start: 20071201
  2. TAXOL [Suspect]
     Indication: BREAST CANCER
     Route: 042
  3. FARMORUBICIN [Suspect]
     Indication: BREAST CANCER
     Route: 042
  4. ENDOXAN [Suspect]
     Indication: BREAST CANCER
     Route: 042
  5. TAMOXIFEN CITRATE [Concomitant]
  6. FEMARA [Concomitant]
  7. FASLODEX [Concomitant]

REACTIONS (4)
  - ORAL CAVITY FISTULA [None]
  - OSTEONECROSIS OF JAW [None]
  - PAIN IN JAW [None]
  - PARAESTHESIA ORAL [None]
